FAERS Safety Report 14498804 (Version 1)
Quarter: 2018Q1

REPORT INFORMATION
  Report Type: Report from Study
  Country: DE (occurrence: DE)
  Receive Date: 20180207
  Receipt Date: 20180207
  Transmission Date: 20180509
  Serious: Yes (Other)
  Sender: FDA-Public Use
  Company Number: PHHY2017DE050825

PATIENT
  Age: 80 Year
  Sex: Female
  Weight: 43 kg

DRUGS (5)
  1. HYDRODERM [Concomitant]
     Indication: ROSACEA
     Dosage: UNK
     Route: 061
     Dates: start: 200111
  2. METRONIDAZOL [Concomitant]
     Active Substance: METRONIDAZOLE
     Indication: ROSACEA
     Dosage: 1 OT, UNK
     Route: 061
     Dates: start: 200111
  3. COSENTYX [Suspect]
     Active Substance: SECUKINUMAB
     Indication: PSORIASIS
     Dosage: 300 MG, UNK
     Route: 065
     Dates: start: 20160810, end: 20160906
  4. COSENTYX [Suspect]
     Active Substance: SECUKINUMAB
     Dosage: 300 MG, UNK
     Route: 065
     Dates: start: 20170322
  5. COSENTYX [Suspect]
     Active Substance: SECUKINUMAB
     Dosage: 300 MG, UNK
     Route: 065
     Dates: start: 20160907, end: 20170308

REACTIONS (6)
  - Skin fissures [Recovered/Resolved]
  - Blood urine present [Recovered/Resolved]
  - Angular cheilitis [Recovered/Resolved]
  - Lower gastrointestinal haemorrhage [Unknown]
  - Nasopharyngitis [Recovered/Resolved]
  - Haematochezia [Recovered/Resolved]

NARRATIVE: CASE EVENT DATE: 20170301
